FAERS Safety Report 4401927-7 (Version None)
Quarter: 2004Q3

REPORT INFORMATION
  Report Type: 
  Country: None (occurrence: None)
  Receive Date: 20040719
  Receipt Date: 20040719
  Transmission Date: 20050211
  Serious: No
  Sender: FDA-Public Use
  Company Number: None

PATIENT
  Age: 9 Month
  Sex: Female

DRUGS (2)
  1. TOPAMAX [Suspect]
     Dosage: CAPSULE COATED PELLETS
  2. TOPAMAX [Suspect]
     Dosage: CAPSULES COATED PELLETS

REACTIONS (1)
  - MEDICATION ERROR [None]
